FAERS Safety Report 12415080 (Version 2)
Quarter: 2019Q3

REPORT INFORMATION
  Report Type: Spontaneous
  Country: US (occurrence: US)
  Receive Date: 20160530
  Receipt Date: 20190805
  Transmission Date: 20191004
  Serious: Yes (Hospitalization, Other)
  Sender: FDA-Public Use
  Company Number: US-CIPLA LTD.-2016US05913

PATIENT

DRUGS (4)
  1. LAMOTRIGINE. [Suspect]
     Active Substance: LAMOTRIGINE
     Dosage: UNK
     Route: 063
  2. LAMOTRIGINE. [Suspect]
     Active Substance: LAMOTRIGINE
     Dosage: UNK
     Route: 064
  3. PRENATAL VITAMINS [MINERALS NOS;VITAMINS NOS] [Suspect]
     Active Substance: MINERALS\VITAMINS
     Dosage: UNK
     Route: 064
  4. DIPHENHYDRAMINE. [Suspect]
     Active Substance: DIPHENHYDRAMINE
     Dosage: UNK
     Route: 064

REACTIONS (6)
  - Jaundice [Recovered/Resolved]
  - Hypotonia neonatal [Recovered/Resolved]
  - Foetal exposure during pregnancy [Unknown]
  - Exposure via breast milk [Unknown]
  - Poor feeding infant [Recovered/Resolved]
  - Dehydration [Recovered/Resolved]
